FAERS Safety Report 16762288 (Version 1)
Quarter: 2019Q3

REPORT INFORMATION
  Report Type: Spontaneous
  Country: FR (occurrence: FR)
  Receive Date: 20190831
  Receipt Date: 20190831
  Transmission Date: 20191005
  Serious: Yes (Hospitalization)
  Sender: FDA-Public Use
  Company Number: FR-ZYDUS-040129

PATIENT
  Age: 80 Year
  Sex: Male
  Weight: 92 kg

DRUGS (13)
  1. ISOSORBIDE. [Concomitant]
     Active Substance: ISOSORBIDE
     Dosage: IF NECESSARY
  2. ATENOLOL. [Suspect]
     Active Substance: ATENOLOL
     Indication: HYPERTENSIVE HEART DISEASE
     Route: 048
  3. ROSUVASTATIN. [Concomitant]
     Active Substance: ROSUVASTATIN
  4. GLICLAZIDE [Concomitant]
     Active Substance: GLICLAZIDE
  5. INSULIN/INSULIN ASPART PROTAMINE/INSULIN INJECTION/BIPHASIC/INSULIN INJECTION/GLOBIN ZINC/INSULIN IN [Concomitant]
     Dosage: INSULINE SOLOSTAR75 UI/J
  6. MALACEF [Suspect]
     Active Substance: ARTESUNATE
     Indication: MALARIA
     Route: 042
     Dates: start: 20190804, end: 20190805
  7. PERINDOPRIL/PERINDOPRIL ERBUMINE [Concomitant]
  8. METFORMIN/METFORMIN CHLOROPHENOXYACETATE/METFORMIN EMBONATE/METFORMIN HYDROCHLORIDE [Concomitant]
  9. DUTASTERIDE. [Concomitant]
     Active Substance: DUTASTERIDE
  10. LOPERAMIDE [Concomitant]
     Active Substance: LOPERAMIDE
  11. CLOPIDOGREL [Concomitant]
     Active Substance: CLOPIDOGREL BISULFATE
  12. POLYVIDONE [Concomitant]
  13. SOLIFENACIN [Concomitant]
     Active Substance: SOLIFENACIN

REACTIONS (2)
  - Atrioventricular block [Recovered/Resolved]
  - Bradycardia [Recovered/Resolved]

NARRATIVE: CASE EVENT DATE: 20190805
